FAERS Safety Report 4580007-4 (Version None)
Quarter: 2005Q1

REPORT INFORMATION
  Report Type: 
  Country: None (occurrence: None)
  Receive Date: 20050214
  Receipt Date: 20050202
  Transmission Date: 20050727
  Serious: Yes (Other)
  Sender: FDA-Public Use
  Company Number: PHBS2005CA01847

PATIENT
  Sex: Female

DRUGS (1)
  1. SANDOSTATIN LAR [Suspect]
     Dosage: 30 MG, UNK

REACTIONS (5)
  - ABDOMINAL PAIN [None]
  - CHROMATURIA [None]
  - LIVER FUNCTION TEST ABNORMAL [None]
  - PRURITUS [None]
  - SOMNOLENCE [None]
